FAERS Safety Report 16111127 (Version 1)
Quarter: 2019Q2

REPORT INFORMATION
  Report Type: Spontaneous
  Country: US (occurrence: US)
  Receive Date: 20190322
  Receipt Date: 20190322
  Transmission Date: 20190711
  Serious: Yes (Hospitalization)
  Sender: FDA-Public Use
  Company Number: None

PATIENT
  Age: 68 Year
  Sex: Female

DRUGS (5)
  1. CARDIZEN [Concomitant]
  2. LUPRICATOR [Concomitant]
  3. HUMIRA [Suspect]
     Active Substance: ADALIMUMAB
     Indication: CROHN^S DISEASE
     Dosage: ?          OTHER FREQUENCY:EVERY 2 WEEKS;?
     Route: 058
     Dates: start: 20180308
  4. METOPROLOL XL [Concomitant]
     Active Substance: METOPROLOL SUCCINATE
  5. PROLIA 60MG PFS [Concomitant]
     Dates: start: 20170907

REACTIONS (2)
  - Condition aggravated [None]
  - Atrial fibrillation [None]

NARRATIVE: CASE EVENT DATE: 20190321
